FAERS Safety Report 15752328 (Version 1)
Quarter: 2018Q4

REPORT INFORMATION
  Report Type: Spontaneous
  Country: JP (occurrence: JP)
  Receive Date: 20181221
  Receipt Date: 20181221
  Transmission Date: 20190205
  Serious: Yes (Death)
  Sender: FDA-Public Use
  Company Number: JP-NAPPMUNDI-GBR-2018-0060833

PATIENT

DRUGS (3)
  1. OXYCONTIN [Suspect]
     Active Substance: OXYCODONE HYDROCHLORIDE
     Indication: CANCER PAIN
  2. OXIFAST [Suspect]
     Active Substance: OXYCODONE
     Indication: HEAD AND NECK CANCER
     Dosage: 40 MG, DAILY
     Route: 058
     Dates: start: 201809
  3. OXYCONTIN [Suspect]
     Active Substance: OXYCODONE HYDROCHLORIDE
     Indication: HEAD AND NECK CANCER
     Dosage: 50 MG, DAILY
     Route: 048
     Dates: start: 201808, end: 201809

REACTIONS (2)
  - Malignant neoplasm progression [Fatal]
  - Constipation [Recovered/Resolved]

NARRATIVE: CASE EVENT DATE: 201808
